FAERS Safety Report 5773003-2 (Version None)
Quarter: 2008Q2

REPORT INFORMATION
  Report Type: 
  Country: None (occurrence: None)
  Receive Date: 20080613
  Receipt Date: 20080602
  Transmission Date: 20081010
  Serious: Yes (Other)
  Sender: FDA-Public Use
  Company Number: US-PFIZER INC-2008047877

PATIENT
  Sex: Female
  Weight: 72.6 kg

DRUGS (4)
  1. LYRICA [Suspect]
     Indication: FIBROMYALGIA
     Route: 048
  2. OXYCODONE HCL [Concomitant]
  3. SOMA [Concomitant]
  4. REQUIP [Concomitant]

REACTIONS (2)
  - CONVULSION [None]
  - DYSGRAPHIA [None]
